FAERS Safety Report 5271375-9 (Version None)
Quarter: 2007Q1

REPORT INFORMATION
  Report Type: 
  Country: None (occurrence: None)
  Receive Date: 20070321
  Receipt Date: 20070319
  Transmission Date: 20070707
  Serious: Yes (Life-Threatening, Other)
  Sender: FDA-Public Use
  Company Number: JP-SANOFI-SYNTHELABO-F01200600081

PATIENT
  Sex: Female

DRUGS (3)
  1. LEUCOVORIN CALCIUM [Suspect]
     Route: 042
     Dates: start: 20050616, end: 20050617
  2. FLUOROURACIL [Suspect]
     Dosage: 450MG/BODY IN BOLUS THEN 725 MG/BODY AS CONTINUOUS INFUSION DAYS 1 + 2
     Route: 042
     Dates: start: 20050616, end: 20050617
  3. OXALIPLATIN [Suspect]
     Indication: COLON CANCER
     Route: 042
     Dates: start: 20050616, end: 20050616

REACTIONS (4)
  - ACUTE RESPIRATORY FAILURE [None]
  - CARDIAC FAILURE [None]
  - HAEMOGLOBIN DECREASED [None]
  - RENAL FAILURE [None]
